FAERS Safety Report 8013693-7 (Version None)
Quarter: 2011Q4

REPORT INFORMATION
  Report Type: 
  Country: None (occurrence: None)
  Receive Date: 20111227
  Receipt Date: 20111227
  Transmission Date: 20120403
  Serious: Yes (Hospitalization)
  Sender: FDA-Public Use
  Company Number: None

PATIENT
  Sex: Male

DRUGS (2)
  1. SODIUM HYALURONATE [Suspect]
     Indication: OSTEOARTHRITIS
     Dates: start: 20111007, end: 20111014
  2. SODIUM HYALURONATE [Suspect]
     Indication: OSTEOARTHRITIS
     Dates: start: 20111021, end: 20111031

REACTIONS (1)
  - ARTHRITIS BACTERIAL [None]
